FAERS Safety Report 24585048 (Version 1)
Quarter: 2024Q4

REPORT INFORMATION
  Report Type: Spontaneous
  Country: GB (occurrence: GB)
  Receive Date: 20241106
  Receipt Date: 20241106
  Transmission Date: 20250115
  Serious: Yes (Life-Threatening, Other)
  Sender: TEVA
  Company Number: GB-MHRA-CER-RCF-5841445305

PATIENT
  Age: 23 Year
  Sex: Female

DRUGS (1)
  1. BISOPROLOL [Suspect]
     Active Substance: BISOPROLOL\BISOPROLOL FUMARATE
     Indication: Product used for unknown indication
     Dosage: (MORNING)
     Route: 048
     Dates: start: 20241027, end: 20241030

REACTIONS (1)
  - Anaphylactic reaction [Recovered/Resolved]
